FAERS Safety Report 23165497 (Version 1)
Quarter: 2023Q4

REPORT INFORMATION
  Report Type: Other
  Country: None (occurrence: FR)
  Receive Date: 20231109
  Receipt Date: 20231109
  Transmission Date: 20240110
  Serious: Yes (Other)
  Sender: FDA-Public Use
  Company Number: FR-Renata Limited-2148040

PATIENT
  Age: 68 Year
  Sex: Male

DRUGS (2)
  1. PREGABALIN [Suspect]
     Active Substance: PREGABALIN
     Indication: Polyneuropathy alcoholic
     Route: 065
     Dates: start: 202206, end: 2022
  2. Radix-Glycyrrhizae [Concomitant]
     Route: 065

REACTIONS (4)
  - Electrocardiogram QT prolonged [Unknown]
  - Quadriparesis [Unknown]
  - Rhabdomyolysis [Unknown]
  - Product use in unapproved indication [Unknown]

NARRATIVE: CASE EVENT DATE: 20220101
